FAERS Safety Report 8426649-7 (Version None)
Quarter: 2012Q2

REPORT INFORMATION
  Report Type: 
  Country: None (occurrence: None)
  Receive Date: 20120611
  Receipt Date: 20120528
  Transmission Date: 20120825
  Serious: Yes (Hospitalization)
  Sender: FDA-Public Use
  Company Number: JP-UCBSA-057337

PATIENT
  Age: 62 Year
  Sex: Male
  Weight: 64.9 kg

DRUGS (8)
  1. SOLITA-T NO.3 [Concomitant]
     Dosage: DAILY DOSE-500 ML
     Route: 042
     Dates: start: 20120406, end: 20120411
  2. CEFAZOLIN SODIUM [Concomitant]
     Indication: INFECTION PROPHYLAXIS
     Dosage: DAILY DOSE-2 G
     Route: 042
     Dates: start: 20120406, end: 20120409
  3. DIAZEPAM [Concomitant]
     Indication: EPILEPSY
     Dosage: DAILY DOSE-0.2 G
     Route: 048
     Dates: start: 20120406, end: 20120407
  4. VEEN-F [Concomitant]
     Route: 042
     Dates: start: 20120406, end: 20120411
  5. FAMOTIDINE [Concomitant]
     Dosage: DAILY DOSE-40 MG
     Route: 042
     Dates: start: 20120406, end: 20120411
  6. KEPPRA [Suspect]
     Indication: EPILEPSY
     Route: 048
     Dates: start: 20120406, end: 20120427
  7. TEGRETOL [Suspect]
     Indication: EPILEPSY
     Route: 048
     Dates: start: 20120408, end: 20120427
  8. TPN ELECTROLYTES IN PLASTIC CONTAINER [Concomitant]
     Dosage: DAILY DOSE-500 ML
     Route: 042
     Dates: start: 20120406, end: 20120411

REACTIONS (3)
  - NEUTROPHIL COUNT DECREASED [None]
  - WHITE BLOOD CELL COUNT DECREASED [None]
  - DRUG ERUPTION [None]
